FAERS Safety Report 9384194 (Version 1)
Quarter: 2013Q3

REPORT INFORMATION
  Report Type: Spontaneous
  Country: IT (occurrence: IT)
  Receive Date: 20130705
  Receipt Date: 20130705
  Transmission Date: 20140515
  Serious: Yes (Hospitalization)
  Sender: FDA-Public Use
  Company Number: IT-ROCHE-1224458

PATIENT
  Age: 57 Year
  Sex: Female
  Weight: 75 kg

DRUGS (5)
  1. AVASTIN [Suspect]
     Indication: COLON CANCER
     Route: 042
     Dates: start: 20121020, end: 20121124
  2. AVASTIN [Suspect]
     Dosage: RESTARTED
     Route: 065
  3. FLUOROURACIL [Suspect]
     Indication: COLON CANCER
     Route: 042
     Dates: start: 20121020, end: 20121124
  4. FLUOROURACIL [Suspect]
     Dosage: RESTARTED AT REDUCED DOSE
     Route: 065
  5. RIVOTRIL [Concomitant]
     Route: 048

REACTIONS (4)
  - Bronchitis [Recovered/Resolved]
  - Diarrhoea [Recovering/Resolving]
  - Hypokalaemia [Recovering/Resolving]
  - Pyrexia [Recovering/Resolving]
